FAERS Safety Report 5964422-X (Version None)
Quarter: 2008Q4

REPORT INFORMATION
  Report Type: 
  Country: None (occurrence: None)
  Receive Date: 20081124
  Receipt Date: 20081114
  Transmission Date: 20090506
  Serious: Yes (Other)
  Sender: FDA-Public Use
  Company Number: BR-PFIZER INC-2008097985

PATIENT
  Age: 72 Year
  Sex: Male
  Weight: 95 kg

DRUGS (6)
  1. VIAGRA [Suspect]
     Indication: ERECTILE DYSFUNCTION
     Route: 048
     Dates: start: 20000101
  2. ATENOLOL [Concomitant]
  3. SUSTRATE [Concomitant]
  4. VASTAREL [Concomitant]
  5. FENOFIBRATE [Concomitant]
  6. ACETYLSALICYLIC ACID SRT [Concomitant]

REACTIONS (4)
  - CORONARY ARTERY OCCLUSION [None]
  - DRY MOUTH [None]
  - ERYTHEMA [None]
  - FEELING HOT [None]
